FAERS Safety Report 20063864 (Version 2)
Quarter: 2022Q1

REPORT INFORMATION
  Report Type: Spontaneous
  Country: US (occurrence: None)
  Receive Date: 20211112
  Receipt Date: 20220107
  Transmission Date: 20220423
  Serious: Yes (Hospitalization)
  Sender: FDA-Public Use
  Company Number: US-ROCHE-2833240

PATIENT
  Age: 72 Year
  Sex: Female

DRUGS (2)
  1. CAPECITABINE [Suspect]
     Active Substance: CAPECITABINE
     Indication: Product used for unknown indication
     Route: 065
  2. TUKYSA [Suspect]
     Active Substance: TUCATINIB
     Indication: Breast cancer female
     Route: 065

REACTIONS (6)
  - Diarrhoea [Unknown]
  - Nausea [Unknown]
  - Dehydration [Unknown]
  - Dizziness [Unknown]
  - Cerebral haemorrhage [Unknown]
  - Disease progression [Unknown]

NARRATIVE: CASE EVENT DATE: 20211027
